FAERS Safety Report 6561813-3 (Version None)
Quarter: 2010Q1

REPORT INFORMATION
  Report Type: 
  Country: None (occurrence: None)
  Receive Date: 20100130
  Receipt Date: 20091026
  Transmission Date: 20100710
  Serious: No
  Sender: FDA-Public Use
  Company Number: US-ABBOTT-09P-163-0605948-00

PATIENT
  Sex: Female

DRUGS (4)
  1. HUMIRA [Suspect]
     Indication: RHEUMATOID ARTHRITIS
     Dates: start: 20090701
  2. PEPCID [Concomitant]
     Indication: DRUG USE FOR UNKNOWN INDICATION
  3. THYROID MEDICATION [Concomitant]
     Indication: THYROID DISORDER
  4. PREDNISONE [Concomitant]
     Indication: ANAPHYLACTIC REACTION
     Dosage: 196MG DAILY WHEN STARTED
     Dates: start: 20090101

REACTIONS (7)
  - ARTHROPOD BITE [None]
  - GASTROENTERITIS VIRAL [None]
  - IMPAIRED HEALING [None]
  - NASOPHARYNGITIS [None]
  - SINUSITIS [None]
  - SKIN LACERATION [None]
  - UPPER RESPIRATORY TRACT INFECTION [None]
